FAERS Safety Report 16477324 (Version 1)
Quarter: 2019Q2

REPORT INFORMATION
  Report Type: Report from Study
  Country: GB (occurrence: GB)
  Receive Date: 20190626
  Receipt Date: 20190626
  Transmission Date: 20190711
  Serious: Yes (Hospitalization)
  Sender: FDA-Public Use
  Company Number: GB-ROCHE-2344278

PATIENT
  Sex: Female

DRUGS (7)
  1. PARACETAMOL [Concomitant]
     Active Substance: ACETAMINOPHEN
  2. ROACTEMRA [Suspect]
     Active Substance: TOCILIZUMAB
     Indication: RHEUMATOID ARTHRITIS
     Route: 058
     Dates: start: 20180403
  3. LERCANIDIPINE [Concomitant]
     Active Substance: LERCANIDIPINE
  4. SALAZOPYRIN [Concomitant]
     Active Substance: SULFASALAZINE
  5. BISOPROLOL [Concomitant]
     Active Substance: BISOPROLOL
  6. INDAPAMIDE. [Concomitant]
     Active Substance: INDAPAMIDE
  7. LOSARTAN. [Concomitant]
     Active Substance: LOSARTAN

REACTIONS (1)
  - Wrist fracture [Unknown]
